FAERS Safety Report 13898215 (Version 2)
Quarter: 2017Q4

REPORT INFORMATION
  Report Type: Spontaneous
  Country: US (occurrence: US)
  Receive Date: 20170824
  Receipt Date: 20171031
  Transmission Date: 20180320
  Serious: Yes (Other)
  Sender: FDA-Public Use
  Company Number: US-BAYER-2017-158444

PATIENT
  Sex: Female
  Weight: 1.59 kg

DRUGS (1)
  1. SKYLA [Suspect]
     Active Substance: LEVONORGESTREL
     Dosage: 14 MCG/24HR, CONT
     Route: 064

REACTIONS (4)
  - Premature baby [None]
  - Low birth weight baby [None]
  - Foetal hypokinesia [None]
  - Foetal exposure during pregnancy [None]
